FAERS Safety Report 9691901 (Version 21)
Quarter: 2015Q2

REPORT INFORMATION
  Report Type: Report from Study
  Country: CA (occurrence: CA)
  Receive Date: 20131117
  Receipt Date: 20150604
  Transmission Date: 20150821
  Serious: Yes (Hospitalization, Other)
  Sender: FDA-Public Use
  Company Number: CA-ROCHE-1113393

PATIENT
  Age: 66 Year
  Sex: Female
  Weight: 66.8 kg

DRUGS (19)
  1. NAPROXEN. [Concomitant]
     Active Substance: NAPROXEN
  2. LIPITOR [Concomitant]
     Active Substance: ATORVASTATIN CALCIUM
  3. BROMAZEPAM [Concomitant]
     Active Substance: BROMAZEPAM
  4. ACTEMRA [Suspect]
     Active Substance: TOCILIZUMAB
     Indication: RHEUMATOID ARTHRITIS
     Route: 042
     Dates: start: 20111025
  5. ALENDRONATE [Concomitant]
     Active Substance: ALENDRONATE SODIUM
  6. PREDNISONE. [Concomitant]
     Active Substance: PREDNISONE
  7. PROPRANOLOL [Concomitant]
     Active Substance: PROPRANOLOL\PROPRANOLOL HYDROCHLORIDE
  8. SYNTHROID [Concomitant]
     Active Substance: LEVOTHYROXINE SODIUM
  9. PAXIL (CANADA) [Concomitant]
  10. METHOTREXATE [Concomitant]
     Active Substance: METHOTREXATE
  11. ACTEMRA [Suspect]
     Active Substance: TOCILIZUMAB
     Route: 042
     Dates: start: 20130507
  12. PLAQUENIL [Concomitant]
     Active Substance: HYDROXYCHLOROQUINE SULFATE
  13. NEXIUM [Concomitant]
     Active Substance: ESOMEPRAZOLE MAGNESIUM
  14. RALIVIA [Concomitant]
     Active Substance: TRAMADOL HYDROCHLORIDE
  15. LAMICTAL [Concomitant]
     Active Substance: LAMOTRIGINE
  16. ACETYLSALICYLIC ACID [Concomitant]
     Active Substance: ASPIRIN
  17. FOLIC ACID. [Concomitant]
     Active Substance: FOLIC ACID
  18. NORVASC [Concomitant]
     Active Substance: AMLODIPINE BESYLATE
  19. SULFASALAZINE. [Concomitant]
     Active Substance: SULFASALAZINE

REACTIONS (41)
  - Phlebitis [Not Recovered/Not Resolved]
  - Renal pain [Not Recovered/Not Resolved]
  - Pain [Not Recovered/Not Resolved]
  - White blood cell count decreased [Not Recovered/Not Resolved]
  - Heart rate decreased [Not Recovered/Not Resolved]
  - Diarrhoea [Recovered/Resolved]
  - Drug ineffective [Unknown]
  - Insomnia [Unknown]
  - Anorectal disorder [Not Recovered/Not Resolved]
  - Musculoskeletal pain [Unknown]
  - Gastroenteritis [Recovered/Resolved]
  - Fall [Unknown]
  - Rheumatoid arthritis [Unknown]
  - Nasopharyngitis [Not Recovered/Not Resolved]
  - Rhinorrhoea [Unknown]
  - Urinary tract infection [Recovering/Resolving]
  - Anxiety [Unknown]
  - Weight increased [Unknown]
  - Condition aggravated [Unknown]
  - Arthralgia [Unknown]
  - Infusion related reaction [Unknown]
  - Fatigue [Not Recovered/Not Resolved]
  - Fatigue [Not Recovered/Not Resolved]
  - Weight fluctuation [Unknown]
  - Malaise [Unknown]
  - Fall [Unknown]
  - Poor quality sleep [Unknown]
  - Hypotension [Unknown]
  - Balance disorder [Unknown]
  - Neck pain [Recovering/Resolving]
  - Pyrexia [Unknown]
  - Fungal infection [Recovering/Resolving]
  - Rib fracture [Unknown]
  - Musculoskeletal stiffness [Recovering/Resolving]
  - Oropharyngeal pain [Not Recovered/Not Resolved]
  - Sneezing [Not Recovered/Not Resolved]
  - Pain [Not Recovered/Not Resolved]
  - Neutropenia [Unknown]
  - Drug ineffective [Unknown]
  - Depressed mood [Unknown]
  - Blood pressure increased [Unknown]

NARRATIVE: CASE EVENT DATE: 20111025
